FAERS Safety Report 14350126 (Version 2)
Quarter: 2018Q1

REPORT INFORMATION
  Report Type: Spontaneous
  Country: US (occurrence: US)
  Receive Date: 20180104
  Receipt Date: 20180223
  Transmission Date: 20180509
  Serious: Yes (Hospitalization, Other)
  Sender: FDA-Public Use
  Company Number: US-009507513-1712USA014534

PATIENT
  Age: 42 Year
  Sex: Male

DRUGS (1)
  1. KEYTRUDA [Suspect]
     Active Substance: PEMBROLIZUMAB
     Indication: NASOPHARYNGEAL CANCER
     Dosage: 200 MG, Q3W
     Route: 042
     Dates: start: 201702

REACTIONS (6)
  - Gait disturbance [Unknown]
  - Ejection fraction abnormal [Unknown]
  - Product use in unapproved indication [Unknown]
  - Muscular weakness [Unknown]
  - Diastolic dysfunction [Unknown]
  - Bradycardia [Unknown]

NARRATIVE: CASE EVENT DATE: 201702
